FAERS Safety Report 20108063 (Version 1)
Quarter: 2021Q4

REPORT INFORMATION
  Report Type: Spontaneous
  Country: US (occurrence: None)
  Receive Date: 20211124
  Receipt Date: 20211124
  Transmission Date: 20220303
  Serious: Yes (Hospitalization)
  Sender: FDA-Public Use
  Company Number: None

PATIENT
  Age: 61 Year
  Sex: Female

DRUGS (4)
  1. ORENCIA [Suspect]
     Active Substance: ABATACEPT
     Indication: Rheumatoid arthritis
     Dosage: FREQUENCY : WEEKLY;?
     Route: 058
     Dates: start: 20200731
  2. CALCIUM TAB [Concomitant]
  3. FISH OIL [Concomitant]
     Active Substance: FISH OIL
  4. FOLIC ACID [Concomitant]
     Active Substance: FOLIC ACID

REACTIONS (3)
  - COVID-19 [None]
  - Therapy interrupted [None]
  - Condition aggravated [None]

NARRATIVE: CASE EVENT DATE: 20211001
